FAERS Safety Report 14742084 (Version 1)
Quarter: 2018Q2

REPORT INFORMATION
  Report Type: Spontaneous
  Country: FR (occurrence: FR)
  Receive Date: 20180410
  Receipt Date: 20180410
  Transmission Date: 20180711
  Serious: Yes (Other)
  Sender: FDA-Public Use
  Company Number: FR-ROCHE-2101795

PATIENT
  Age: 72 Year
  Sex: Male
  Weight: 66 kg

DRUGS (6)
  1. COTELLIC [Suspect]
     Active Substance: COBIMETINIB
     Indication: METASTATIC MALIGNANT MELANOMA
     Dosage: 0-3-0
     Route: 048
     Dates: start: 20170106, end: 20170203
  2. RAMIPRIL. [Concomitant]
     Active Substance: RAMIPRIL
     Indication: MYOCARDIAL ISCHAEMIA
     Dosage: 1-0-2
     Route: 047
  3. ZELBORAF [Suspect]
     Active Substance: VEMURAFENIB
     Indication: METASTATIC MALIGNANT MELANOMA
     Dosage: 4-0-4
     Route: 048
     Dates: start: 20170106, end: 20170203
  4. JANUVIA [Concomitant]
     Active Substance: SITAGLIPTIN PHOSPHATE
     Indication: TYPE 2 DIABETES MELLITUS
     Dosage: 1-0-0
     Route: 048
     Dates: end: 20170803
  5. BISOCE [Concomitant]
     Active Substance: BISOPROLOL
     Indication: MYOCARDIAL ISCHAEMIA
     Route: 048
  6. PRAVASTATINE [Concomitant]
     Active Substance: PRAVASTATIN
     Indication: MYOCARDIAL ISCHAEMIA
     Dosage: 0-0-1
     Route: 048

REACTIONS (2)
  - Folliculitis [Recovered/Resolved]
  - Diarrhoea [Recovered/Resolved]

NARRATIVE: CASE EVENT DATE: 20170111
